FAERS Safety Report 8556959-4 (Version None)
Quarter: 2012Q3

REPORT INFORMATION
  Report Type: 
  Country: None (occurrence: None)
  Receive Date: 20120801
  Receipt Date: 20120724
  Transmission Date: 20120928
  Serious: Yes (Hospitalization)
  Sender: FDA-Public Use
  Company Number: JP-JNJFOC-20120715171

PATIENT
  Sex: Female
  Weight: 49 kg

DRUGS (4)
  1. XARELTO [Suspect]
     Indication: CEREBROVASCULAR ACCIDENT PROPHYLAXIS
     Route: 048
     Dates: start: 20120612, end: 20120702
  2. LASIX [Concomitant]
     Indication: CARDIAC FAILURE
     Route: 048
     Dates: start: 20120612, end: 20120706
  3. FLOMAX [Concomitant]
     Indication: URINARY TRACT INFECTION
     Route: 048
     Dates: start: 20120612, end: 20120617
  4. ALDACTONE [Concomitant]
     Route: 048
     Dates: start: 20120612, end: 20120706

REACTIONS (2)
  - BLOOD CREATININE INCREASED [None]
  - ANAEMIA [None]
